FAERS Safety Report 6186642-4 (Version None)
Quarter: 2009Q2

REPORT INFORMATION
  Report Type: 
  Country: None (occurrence: None)
  Receive Date: 20090508
  Receipt Date: 20090508
  Transmission Date: 20091009
  Serious: Yes (Other)
  Sender: FDA-Public Use
  Company Number: None

PATIENT
  Sex: Female
  Weight: 63.05 kg

DRUGS (1)
  1. AMLODIPINE [Suspect]
     Indication: HYPERTENSION
     Dosage: 10MG 11X DAILY ORAL
     Route: 048
     Dates: start: 20041026, end: 20090504

REACTIONS (2)
  - ALOPECIA [None]
  - PRODUCT SUBSTITUTION ISSUE [None]
